FAERS Safety Report 20409318 (Version 1)
Quarter: 2022Q1

REPORT INFORMATION
  Report Type: Spontaneous
  Country: US (occurrence: US)
  Receive Date: 20220201
  Receipt Date: 20220201
  Transmission Date: 20220423
  Serious: No
  Sender: FDA-Public Use
  Company Number: US-BAUSCH-BL-2022-002250

PATIENT
  Age: 69 Year
  Sex: Female
  Weight: 44.038 kg

DRUGS (5)
  1. NORITATE [Suspect]
     Active Substance: METRONIDAZOLE
     Indication: Rosacea
     Dosage: STARTED MANY YEARS AGO (1980S OR 1990S)
     Route: 061
  2. NORITATE [Suspect]
     Active Substance: METRONIDAZOLE
     Route: 061
     Dates: start: 202201
  3. SYNTHROID [Concomitant]
     Active Substance: LEVOTHYROXINE SODIUM
     Indication: Product used for unknown indication
  4. MELOXICAM [Concomitant]
     Active Substance: MELOXICAM
     Indication: Product used for unknown indication
  5. ROSUVASTATIN [Concomitant]
     Active Substance: ROSUVASTATIN
     Indication: Product used for unknown indication

REACTIONS (4)
  - Rosacea [Unknown]
  - Product physical consistency issue [Unknown]
  - Therapeutic product effect decreased [Unknown]
  - Product quality issue [Unknown]

NARRATIVE: CASE EVENT DATE: 20220101
